FAERS Safety Report 19705659 (Version 1)
Quarter: 2021Q3

REPORT INFORMATION
  Report Type: Report from Study
  Country: US (occurrence: US)
  Receive Date: 20210817
  Receipt Date: 20210817
  Transmission Date: 20211014
  Serious: No
  Sender: FDA-Public Use
  Company Number: US-ACADIA PHARMACEUTICALS INC.-ACA-2021-PIM-002733

PATIENT
  Sex: Female

DRUGS (11)
  1. ESCITALOPRAM [Concomitant]
     Active Substance: ESCITALOPRAM OXALATE
  2. QUETIAPINE. [Concomitant]
     Active Substance: QUETIAPINE
  3. CEFDINIR. [Concomitant]
     Active Substance: CEFDINIR
  4. EZETIMIBE/SIMVASTATIN [Concomitant]
     Active Substance: EZETIMIBE\SIMVASTATIN
  5. LEVOTHYROXIN [Concomitant]
     Active Substance: LEVOTHYROXINE
  6. LEVSIN [Concomitant]
     Active Substance: HYOSCYAMINE SULFATE
  7. MYRBETRIQ [Concomitant]
     Active Substance: MIRABEGRON
  8. ALENDRONATE [Concomitant]
     Active Substance: ALENDRONATE SODIUM
  9. LORAZEPAM. [Concomitant]
     Active Substance: LORAZEPAM
  10. VALSARTAN HCTZ [Concomitant]
     Active Substance: HYDROCHLOROTHIAZIDE\VALSARTAN
  11. NUPLAZID [Suspect]
     Active Substance: PIMAVANSERIN TARTRATE
     Indication: PARKINSON^S DISEASE
     Dosage: 34 MILLIGRAM, QD
     Route: 048
     Dates: start: 20210629, end: 2021

REACTIONS (1)
  - Hypersensitivity [Unknown]
